FAERS Safety Report 6405093-8 (Version None)
Quarter: 2009Q4

REPORT INFORMATION
  Report Type: 
  Country: None (occurrence: None)
  Receive Date: 20091019
  Receipt Date: 20091012
  Transmission Date: 20100525
  Serious: Yes (Death)
  Sender: FDA-Public Use
  Company Number: US-ROCHE-662361

PATIENT
  Age: 38 Year
  Sex: Male

DRUGS (3)
  1. XELODA [Suspect]
     Indication: COLORECTAL CANCER
     Route: 048
     Dates: start: 20081101
  2. AVASTIN [Concomitant]
  3. IRINOTECAN HCL [Concomitant]

REACTIONS (1)
  - DEATH [None]
